FAERS Safety Report 20572389 (Version 1)
Quarter: 2022Q1

REPORT INFORMATION
  Report Type: Report from Study
  Country: US (occurrence: None)
  Receive Date: 20220309
  Receipt Date: 20220309
  Transmission Date: 20220424
  Serious: Yes (Other)
  Sender: FDA-Public Use
  Company Number: US-Hikma Pharmaceuticals USA Inc.-US-H14001-22-00590

PATIENT

DRUGS (1)
  1. KLOXXADO [Suspect]
     Active Substance: NALOXONE HYDROCHLORIDE
     Indication: Overdose
     Dosage: UNKNOWN
     Route: 045

REACTIONS (4)
  - Drug withdrawal syndrome [Unknown]
  - Confusional state [Unknown]
  - Agitation [Unknown]
  - Restlessness [Unknown]
